FAERS Safety Report 7472652-3 (Version None)
Quarter: 2011Q2

REPORT INFORMATION
  Report Type: 
  Country: None (occurrence: None)
  Receive Date: 20110502
  Receipt Date: 20110413
  Transmission Date: 20111010
  Serious: Yes (Other)
  Sender: FDA-Public Use
  Company Number: 031032

PATIENT
  Sex: Female
  Weight: 83.9 kg

DRUGS (9)
  1. CITALOPRAM [Concomitant]
  2. TYLENOL EXTRA STRENGTH [Concomitant]
  3. GLYBURIDE AND METFORMIN HCL [Concomitant]
  4. CRESTOR [Concomitant]
  5. FOLIC ACID [Concomitant]
  6. METHOTREXATE [Concomitant]
  7. OMEPRAZOLE [Concomitant]
  8. VITAMIN D [Concomitant]
  9. CIMZIA [Suspect]
     Indication: RHEUMATOID ARTHRITIS
     Dosage: (400 MG 2X/WEEK SUBCUTANEOUS)
     Route: 058
     Dates: start: 20101023, end: 20101120

REACTIONS (3)
  - CONDITION AGGRAVATED [None]
  - RHEUMATOID ARTHRITIS [None]
  - PSORIASIS [None]
